FAERS Safety Report 14752172 (Version 1)
Quarter: 2018Q2

REPORT INFORMATION
  Report Type: Spontaneous
  Country: US (occurrence: US)
  Receive Date: 20180412
  Receipt Date: 20180412
  Transmission Date: 20180711
  Serious: No
  Sender: FDA-Public Use
  Company Number: US-BAYER-2018-070061

PATIENT
  Age: 77 Year
  Sex: Female
  Weight: 55.33 kg

DRUGS (3)
  1. MIRALAX [Suspect]
     Active Substance: POLYETHYLENE GLYCOL 3350
     Indication: CONSTIPATION
     Dosage: UNK (1 CAPFUL DAILY)
     Route: 048
     Dates: start: 20180405, end: 20180409
  2. MIRALAX [Suspect]
     Active Substance: POLYETHYLENE GLYCOL 3350
     Indication: CONSTIPATION
     Dosage: UNK
     Route: 048
     Dates: start: 2008, end: 20180404
  3. METAMUCIL [Concomitant]
     Active Substance: PLANTAGO SEED

REACTIONS (5)
  - Product taste abnormal [None]
  - Drug ineffective [Unknown]
  - Poor quality drug administered [Unknown]
  - Product use in unapproved indication [None]
  - Product odour abnormal [Unknown]

NARRATIVE: CASE EVENT DATE: 20180405
